FAERS Safety Report 14685703 (Version 1)
Quarter: 2018Q1

REPORT INFORMATION
  Report Type: Spontaneous
  Country: FR (occurrence: FR)
  Receive Date: 20180327
  Receipt Date: 20180327
  Transmission Date: 20180509
  Serious: Yes (Hospitalization)
  Sender: FDA-Public Use
  Company Number: FR-PFIZER INC-2018121038

PATIENT
  Age: 73 Year
  Sex: Female
  Weight: 46 kg

DRUGS (7)
  1. KARDEGIC [Concomitant]
     Active Substance: ASPIRIN DL-LYSINE
     Dosage: UNK
  2. VENLAFAXINE HCL [Suspect]
     Active Substance: VENLAFAXINE HYDROCHLORIDE
     Dosage: 75 MG, 1X/DAY
     Route: 048
     Dates: start: 20180118, end: 20180209
  3. TAVANIC [Suspect]
     Active Substance: LEVOFLOXACIN
     Indication: INFECTION
     Dosage: 500 MG, 1X/DAY
     Route: 048
     Dates: start: 20180129, end: 20180203
  4. ZERBAXA [Suspect]
     Active Substance: CEFTOLOZANE SULFATE\TAZOBACTAM SODIUM
     Indication: INFECTION
     Dosage: 3 G, 1X/DAY
     Route: 042
     Dates: start: 20180126, end: 20180208
  5. CLAMOXYL /00249601/ [Suspect]
     Active Substance: AMOXICILLIN
     Indication: INFECTION
     Dosage: 4.5 G, 1X/DAY
     Route: 048
     Dates: start: 20180207, end: 20180209
  6. IRBESARTAN. [Concomitant]
     Active Substance: IRBESARTAN
     Dosage: UNK
  7. LANSOPRAZOLE. [Concomitant]
     Active Substance: LANSOPRAZOLE
     Dosage: UNK

REACTIONS (3)
  - Generalised tonic-clonic seizure [Recovering/Resolving]
  - Epilepsy [Recovering/Resolving]
  - Status epilepticus [Recovering/Resolving]

NARRATIVE: CASE EVENT DATE: 20180203
